FAERS Safety Report 20257409 (Version 1)
Quarter: 2021Q4

REPORT INFORMATION
  Report Type: Spontaneous
  Country: US (occurrence: US)
  Receive Date: 20211230
  Receipt Date: 20211230
  Transmission Date: 20220303
  Serious: Yes (Other)
  Sender: FDA-Public Use
  Company Number: US-AMNEAL PHARMACEUTICALS-2021-AMRX-00272

PATIENT
  Sex: Male

DRUGS (1)
  1. PHENYTOIN SODIUM [Suspect]
     Active Substance: PHENYTOIN SODIUM
     Indication: Seizure
     Dosage: UNK
     Route: 048
     Dates: start: 2013

REACTIONS (9)
  - Suicidal ideation [Unknown]
  - Amnesia [Unknown]
  - Mouth swelling [Unknown]
  - Panic attack [Unknown]
  - Aggression [Unknown]
  - Abnormal behaviour [Unknown]
  - Anger [Unknown]
  - Insomnia [Unknown]
  - Vomiting [Unknown]

NARRATIVE: CASE EVENT DATE: 20130101
